FAERS Safety Report 9822865 (Version 1)
Quarter: 2014Q1

REPORT INFORMATION
  Report Type: Spontaneous
  Country: US (occurrence: US)
  Receive Date: 20140116
  Receipt Date: 20140116
  Transmission Date: 20141002
  Serious: No
  Sender: FDA-Public Use
  Company Number: US-009507513-1401USA005416

PATIENT
  Age: 33 Year
  Sex: Male

DRUGS (2)
  1. PEGINTRON [Suspect]
     Indication: HEPATITIS C
     Dosage: UNK
     Route: 058
  2. RIBAVIRIN [Concomitant]
     Dosage: UNK, TID
     Route: 048

REACTIONS (5)
  - Underdose [Unknown]
  - Product reconstitution issue [Unknown]
  - Product packaging quantity issue [Unknown]
  - Incorrect product storage [Unknown]
  - No adverse event [Unknown]
